FAERS Safety Report 9585259 (Version 1)
Quarter: 2013Q4

REPORT INFORMATION
  Report Type: Spontaneous
  Country: US (occurrence: US)
  Receive Date: 20131002
  Receipt Date: 20131002
  Transmission Date: 20140711
  Serious: No
  Sender: FDA-Public Use
  Company Number: US-AMGEN-USASP2013062929

PATIENT
  Age: 69 Year
  Sex: Male

DRUGS (1)
  1. ENBREL [Suspect]
     Indication: PSORIASIS
     Dosage: 25 MG, 2 TIMES/WK
     Route: 065
     Dates: start: 20111024

REACTIONS (7)
  - Oral discomfort [Not Recovered/Not Resolved]
  - Abdominal discomfort [Not Recovered/Not Resolved]
  - Dry mouth [Not Recovered/Not Resolved]
  - Fatigue [Not Recovered/Not Resolved]
  - Asthenia [Not Recovered/Not Resolved]
  - Eye disorder [Not Recovered/Not Resolved]
  - Psoriasis [Not Recovered/Not Resolved]
